FAERS Safety Report 9377824 (Version 1)
Quarter: 2013Q3

REPORT INFORMATION
  Report Type: Spontaneous
  Country: US (occurrence: US)
  Receive Date: 20130701
  Receipt Date: 20130701
  Transmission Date: 20140515
  Serious: No
  Sender: FDA-Public Use
  Company Number: US-GLAXOSMITHKLINE-A1017954A

PATIENT
  Sex: Female

DRUGS (6)
  1. IMITREX [Suspect]
     Indication: HEADACHE
     Route: 048
  2. EXCEDRIN [Concomitant]
  3. MAGNESIUM [Concomitant]
  4. WILLOW BARK [Concomitant]
  5. FEVERFEW [Concomitant]
  6. STADOL [Concomitant]

REACTIONS (4)
  - Drug ineffective [Unknown]
  - Menopausal symptoms [Not Recovered/Not Resolved]
  - Retching [Unknown]
  - Headache [Unknown]
